FAERS Safety Report 6905918-3 (Version None)
Quarter: 2010Q3

REPORT INFORMATION
  Report Type: 
  Country: None (occurrence: None)
  Receive Date: 20100803
  Receipt Date: 20100803
  Transmission Date: 20110219
  Serious: Yes (Hospitalization)
  Sender: FDA-Public Use
  Company Number: None

PATIENT
  Sex: Male
  Weight: 93.4 kg

DRUGS (4)
  1. BUSULFAN [Suspect]
     Dosage: 1008 MG
     Dates: end: 20100717
  2. CYTARABINE [Suspect]
     Dosage: 29140 MG
     Dates: end: 20100528
  3. ETOPOSIDE [Suspect]
     Dosage: 8560 MG
     Dates: end: 20100718
  4. G-CSF (FILGRASTIM, AMGEN) [Suspect]
     Dosage: 12780 MG
     Dates: end: 20100730

REACTIONS (5)
  - DYSPHAGIA [None]
  - FEBRILE NEUTROPENIA [None]
  - LARYNGEAL OEDEMA [None]
  - MUCOSAL INFLAMMATION [None]
  - STRIDOR [None]
